FAERS Safety Report 12897174 (Version 2)
Quarter: 2016Q4

REPORT INFORMATION
  Report Type: Spontaneous
  Country: US (occurrence: US)
  Receive Date: 20161031
  Receipt Date: 20161031
  Transmission Date: 20170207
  Serious: Yes (Hospitalization, Other)
  Sender: FDA-Public Use
  Company Number: US-GILEAD-2016-0240604

PATIENT
  Age: 71 Year
  Sex: Female

DRUGS (1)
  1. LETAIRIS [Suspect]
     Active Substance: AMBRISENTAN
     Indication: COR PULMONALE CHRONIC
     Dosage: 10 MG, UNK
     Route: 048

REACTIONS (2)
  - Off label use [Not Recovered/Not Resolved]
  - Cerebrovascular accident [Unknown]
